FAERS Safety Report 5527912-X (Version None)
Quarter: 2007Q4

REPORT INFORMATION
  Report Type: 
  Country: None (occurrence: None)
  Receive Date: 20071126
  Receipt Date: 20071126
  Transmission Date: 20080405
  Serious: Yes (Hospitalization, Other)
  Sender: FDA-Public Use
  Company Number: None

PATIENT
  Sex: Female

DRUGS (6)
  1. REVLIMID [Suspect]
     Indication: MYELODYSPLASTIC SYNDROME
     Dosage: 5MG  DAILY FOR 21D/28D  PO
     Route: 048
     Dates: start: 20071110, end: 20071118
  2. REVLIMID [Suspect]
     Indication: MYELODYSPLASTIC SYNDROME
     Dosage: 10MG  DAILY FOR 21D/28D   PO
     Route: 048
     Dates: start: 20070814, end: 20070903
  3. EXJADE [Concomitant]
  4. FOSAMAX PLUS D [Concomitant]
  5. LORATADINE [Concomitant]
  6. ASPIRIN [Concomitant]

REACTIONS (5)
  - FEBRILE NEUTROPENIA [None]
  - LUNG INFECTION PSEUDOMONAL [None]
  - PSEUDOMONAL BACTERAEMIA [None]
  - THROMBOCYTOPENIA [None]
  - UPPER RESPIRATORY TRACT INFECTION [None]
